FAERS Safety Report 13499196 (Version 1)
Quarter: 2017Q2

REPORT INFORMATION
  Report Type: Spontaneous
  Country: US (occurrence: US)
  Receive Date: 20170428
  Receipt Date: 20170428
  Transmission Date: 20170830
  Serious: Yes (Hospitalization)
  Sender: FDA-Public Use
  Company Number: None

PATIENT
  Age: 66 Year
  Sex: Female

DRUGS (2)
  1. FORTEO [Suspect]
     Active Substance: TERIPARATIDE
     Indication: OSTEOPOROSIS
     Dosage: 600MCG/2.4ML QDAY INJECTION
  2. FORTEO [Suspect]
     Active Substance: TERIPARATIDE
     Indication: ADVERSE EVENT
     Dosage: 600MCG/2.4ML QDAY INJECTION

REACTIONS (1)
  - Mass [None]

NARRATIVE: CASE EVENT DATE: 20170427
